FAERS Safety Report 20897155 (Version 1)
Quarter: 2022Q2

REPORT INFORMATION
  Report Type: Spontaneous
  Country: US (occurrence: US)
  Receive Date: 20220531
  Receipt Date: 20220531
  Transmission Date: 20220721
  Serious: Yes (Hospitalization)
  Sender: FDA-Public Use
  Company Number: US-BRISTOL-MYERS SQUIBB COMPANY-2022-044715

PATIENT
  Age: 59 Year
  Sex: Male

DRUGS (1)
  1. REVLIMID [Suspect]
     Active Substance: LENALIDOMIDE
     Indication: Product used for unknown indication
     Dosage: CAPSULE : 2.5MG
     Route: 048
     Dates: start: 20220426

REACTIONS (4)
  - Heart rate increased [Unknown]
  - Chest pain [Unknown]
  - Respiration abnormal [Unknown]
  - Pyrexia [Unknown]

NARRATIVE: CASE EVENT DATE: 20220427
